FAERS Safety Report 23985122 (Version 1)
Quarter: 2024Q2

REPORT INFORMATION
  Report Type: Spontaneous
  Country: US (occurrence: None)
  Receive Date: 20240617
  Receipt Date: 20240617
  Transmission Date: 20240716
  Serious: No
  Sender: FDA-Public Use
  Company Number: None

PATIENT
  Age: 63 Year
  Sex: Female

DRUGS (1)
  1. BENLYSTA [Suspect]
     Active Substance: BELIMUMAB
     Indication: Systemic lupus erythematosus
     Dosage: ?INJECT 200MG SUBCUTANEOUSL ONCE A WEEK AS DIRECTED.
     Route: 058
     Dates: start: 202404

REACTIONS (2)
  - Cystitis [None]
  - Lower limb fracture [None]
